FAERS Safety Report 10973223 (Version 4)
Quarter: 2015Q2

REPORT INFORMATION
  Report Type: Spontaneous
  Country: US (occurrence: US)
  Receive Date: 20150401
  Receipt Date: 20150603
  Transmission Date: 20150821
  Serious: Yes (Other)
  Sender: FDA-Public Use
  Company Number: US-HORIZON-ACT-0019-2015

PATIENT
  Age: 70 Year
  Sex: Female

DRUGS (4)
  1. ACTIMMUNE [Suspect]
     Active Substance: INTERFERON GAMMA-1B
     Indication: CHRONIC GRANULOMATOUS DISEASE
     Route: 058
     Dates: start: 201410
  2. MOTRIN [Concomitant]
     Active Substance: IBUPROFEN
     Indication: PYREXIA
  3. MERREM [Concomitant]
     Active Substance: MEROPENEM
     Route: 042
  4. ALEVE [Concomitant]
     Active Substance: NAPROXEN SODIUM

REACTIONS (4)
  - Diarrhoea [Unknown]
  - Fatigue [Recovering/Resolving]
  - Aphthous stomatitis [Unknown]
  - Sinusitis [Recovering/Resolving]
